FAERS Safety Report 13535009 (Version 2)
Quarter: 2017Q2

REPORT INFORMATION
  Report Type: Spontaneous
  Country: JP (occurrence: JP)
  Receive Date: 20170511
  Receipt Date: 20170612
  Transmission Date: 20170830
  Serious: Yes (Other)
  Sender: FDA-Public Use
  Company Number: JP-ROCHE-1933757

PATIENT
  Age: 40 Year
  Sex: Female

DRUGS (3)
  1. PACLITAXEL. [Concomitant]
     Active Substance: PACLITAXEL
     Indication: CERVIX CARCINOMA
     Dosage: DOSAGE IS UNCERTAIN. ?FIVE TIMES
     Route: 041
     Dates: end: 201706
  2. CARBOPLATIN. [Concomitant]
     Active Substance: CARBOPLATIN
     Indication: CERVIX CARCINOMA
     Dosage: DOSAGE IS UNCERTAIN. ?FIVE TIMES
     Route: 041
     Dates: end: 201706
  3. AVASTIN [Suspect]
     Active Substance: BEVACIZUMAB
     Indication: CERVIX CARCINOMA
     Dosage: DOSAGE IS UNCERTAIN. ?FIVE TIMES?DATE OF MOST RECENT DOSE: JUN/2017
     Route: 041

REACTIONS (1)
  - Intestinal obstruction [Recovered/Resolved]
